FAERS Safety Report 13908210 (Version 1)
Quarter: 2017Q3

REPORT INFORMATION
  Report Type: Other
  Country: AR (occurrence: AR)
  Receive Date: 20170825
  Receipt Date: 20170825
  Transmission Date: 20171127
  Serious: Yes (Death)
  Sender: FDA-Public Use
  Company Number: AR-TERSERA THERAPEUTICS, LLC-2025111

PATIENT
  Age: 56 Year
  Sex: Male

DRUGS (1)
  1. ERGOMAR [Suspect]
     Active Substance: ERGOTAMINE TARTRATE
     Indication: MIGRAINE
     Route: 060

REACTIONS (8)
  - Hypertension [Fatal]
  - Acute kidney injury [Fatal]
  - Peripheral ischaemia [Fatal]
  - Intestinal ischaemia [Fatal]
  - Somnolence [Fatal]
  - Ergot poisoning [Fatal]
  - Multiple organ dysfunction syndrome [Fatal]
  - Mental impairment [Fatal]
